FAERS Safety Report 4607333-4 (Version None)
Quarter: 2005Q1

REPORT INFORMATION
  Report Type: 
  Country: None (occurrence: None)
  Receive Date: 20050311
  Receipt Date: 20050311
  Transmission Date: 20050727
  Serious: No
  Sender: FDA-Public Use
  Company Number: None

PATIENT
  Age: 65 Year
  Sex: Female
  Weight: 56.246 kg

DRUGS (1)
  1. LEXAPRO [Suspect]
     Indication: PAIN
     Dosage: 10 MG DAILY - A.M.

REACTIONS (30)
  - ABDOMINAL PAIN [None]
  - ABNORMAL DREAMS [None]
  - ANIMAL SCRATCH [None]
  - BACK PAIN [None]
  - BALANCE DISORDER [None]
  - CHOKING [None]
  - CONTUSION [None]
  - DIARRHOEA [None]
  - DYSKINESIA [None]
  - ECCHYMOSIS [None]
  - FALL [None]
  - FLATULENCE [None]
  - GASTROOESOPHAGEAL REFLUX DISEASE [None]
  - HAEMORRHAGE [None]
  - HALLUCINATION [None]
  - HEADACHE [None]
  - HYPERHIDROSIS [None]
  - IMPAIRED HEALING [None]
  - JOINT SWELLING [None]
  - OESOPHAGITIS [None]
  - PAIN IN EXTREMITY [None]
  - PALPITATIONS [None]
  - PARAESTHESIA [None]
  - PRURITUS [None]
  - PURULENT DISCHARGE [None]
  - RAYNAUD'S PHENOMENON [None]
  - RESTLESS LEGS SYNDROME [None]
  - SEROTONIN SYNDROME [None]
  - SKIN ULCER [None]
  - VISUAL DISTURBANCE [None]
